FAERS Safety Report 6142169-7 (Version None)
Quarter: 2009Q2

REPORT INFORMATION
  Report Type: 
  Country: None (occurrence: None)
  Receive Date: 20090402
  Receipt Date: 20090325
  Transmission Date: 20091009
  Serious: Yes (Hospitalization)
  Sender: FDA-Public Use
  Company Number: US-AMGEN-US338738

PATIENT
  Sex: Male
  Weight: 77.3 kg

DRUGS (3)
  1. NPLATE [Suspect]
     Indication: IDIOPATHIC THROMBOCYTOPENIC PURPURA
     Dates: start: 20090224, end: 20090303
  2. CORTICOSTEROID NOS [Concomitant]
  3. SYNTHROID [Concomitant]

REACTIONS (1)
  - APLASTIC ANAEMIA [None]
